FAERS Safety Report 5475175-6 (Version None)
Quarter: 2007Q4

REPORT INFORMATION
  Report Type: 
  Country: None (occurrence: None)
  Receive Date: 20071002
  Receipt Date: 20070920
  Transmission Date: 20080405
  Serious: Yes (Hospitalization, Other)
  Sender: FDA-Public Use
  Company Number: ZA-PFIZER INC-2007078370

PATIENT
  Sex: Male

DRUGS (7)
  1. LIPITOR [Suspect]
     Dosage: DAILY DOSE:10MG
     Route: 048
  2. COAPROVEL [Concomitant]
  3. NOVORAPID [Concomitant]
  4. INDAPAMIDE [Concomitant]
  5. GLUCOPHAGE [Concomitant]
  6. INSULIN [Concomitant]
  7. INSULIN HUMAN [Concomitant]

REACTIONS (2)
  - ANGINA UNSTABLE [None]
  - ARTERIOSCLEROSIS CORONARY ARTERY [None]
